FAERS Safety Report 15881339 (Version 3)
Quarter: 2019Q1

REPORT INFORMATION
  Report Type: Spontaneous
  Country: GB (occurrence: GB)
  Receive Date: 20190128
  Receipt Date: 20190322
  Transmission Date: 20190417
  Serious: Yes (Hospitalization, Other)
  Sender: FDA-Public Use
  Company Number: GB-MYLANLABS-2018M1074751

PATIENT
  Age: 65 Year
  Sex: Male
  Weight: 60 kg

DRUGS (20)
  1. BISOPROLOL [Suspect]
     Active Substance: BISOPROLOL
     Indication: MYOCARDIAL INFARCTION
     Dosage: 2.5 MILLIGRAM, QD
     Route: 048
     Dates: start: 20140716, end: 20180405
  2. RAMIPRIL. [Suspect]
     Active Substance: RAMIPRIL
     Indication: MYOCARDIAL INFARCTION
     Dosage: UNK
     Route: 065
     Dates: start: 20140716, end: 20180403
  3. CISPLATIN. [Suspect]
     Active Substance: CISPLATIN
     Indication: SQUAMOUS CELL CARCINOMA
     Dosage: CYCLIC (DAYS 1, 22 AND 43 OF CRT PHASE)
     Route: 041
     Dates: start: 20180222, end: 20180222
  4. ASPIRIN                            /00002701/ [Suspect]
     Active Substance: ASPIRIN
     Indication: MYOCARDIAL INFARCTION
     Dosage: UNK
     Route: 065
     Dates: start: 20140716
  5. AVELUMAB [Concomitant]
     Active Substance: AVELUMAB
     Indication: SQUAMOUS CELL CARCINOMA
     Dosage: DAY 1 OF LEAD-IN PHASE, DAYS 8, 25 AND 39 OF CRT PHASE EVERY 2 WEEKS DURING MAINTENANCE PHASE
     Route: 041
     Dates: start: 20180214
  6. PARACETAMOL [Concomitant]
     Active Substance: ACETAMINOPHEN
     Indication: NECK PAIN
     Dosage: UNK
     Dates: start: 20180308
  7. FORCEVAL                           /07405301/ [Concomitant]
     Active Substance: FOLIC ACID\IRON\MINERALS\VITAMINS
     Indication: MEDICAL DIET
     Dosage: UNK
     Dates: start: 20180405
  8. FENTANYL. [Concomitant]
     Active Substance: FENTANYL
     Indication: NECK PAIN
     Dosage: UNK
     Dates: start: 20180330
  9. AMOXICILLIN. [Concomitant]
     Active Substance: AMOXICILLIN
     Indication: LOWER RESPIRATORY TRACT INFECTION
     Dosage: UNK
     Route: 065
     Dates: start: 20180411
  10. NYSTATIN. [Concomitant]
     Active Substance: NYSTATIN
     Indication: ORAL CANDIDIASIS
     Dosage: UNK
     Dates: start: 20180406
  11. AMITRIPTYLINE [Concomitant]
     Active Substance: AMITRIPTYLINE
     Indication: MUSCULOSKELETAL PAIN
     Dosage: UNK
     Dates: start: 20141012
  12. METRONIDAZOLE. [Concomitant]
     Active Substance: METRONIDAZOLE
     Indication: LOWER RESPIRATORY TRACT INFECTION
     Dosage: UNK
     Dates: start: 20180411
  13. THIAMINE. [Concomitant]
     Active Substance: THIAMINE
     Indication: VITAMIN SUPPLEMENTATION
     Dosage: UNK
     Dates: start: 20180405
  14. FLUCONAZOLE. [Concomitant]
     Active Substance: FLUCONAZOLE
     Indication: ORAL CANDIDIASIS
     Dosage: UNK
     Dates: start: 20180319, end: 20180406
  15. CAPHOSOL [Concomitant]
     Active Substance: CALCIUM CHLORIDE\SODIUM CHLORIDE\SODIUM PHOSPHATE, DIBASIC, ANHYDROUS\SODIUM PHOSPHATE, MONOBASIC, ANHYDROUS
     Indication: STOMATITIS
     Dosage: UNK
     Dates: start: 20180223
  16. MORPHINE SULPHATE [Concomitant]
     Active Substance: MORPHINE SULFATE
     Indication: NECK PAIN
     Dosage: UNK
     Dates: start: 20180407
  17. GLYCERYL TRINITRATE [Concomitant]
     Active Substance: NITROGLYCERIN
     Indication: CHEST PAIN
     Dosage: UNK
     Dates: start: 20180411
  18. CISPLATIN. [Suspect]
     Active Substance: CISPLATIN
     Dosage: CYCLIC (DAYS 1, 22 AND 43 OF CRT PHASE)
     Route: 041
     Dates: start: 20180322, end: 20180322
  19. ATORVASTATIN [Concomitant]
     Active Substance: ATORVASTATIN
     Indication: MYOCARDIAL INFARCTION
     Dosage: UNK
     Dates: start: 20140716
  20. COCODAMOL [Concomitant]
     Active Substance: ACETAMINOPHEN\CODEINE PHOSPHATE
     Indication: STOMATITIS
     Dosage: UNK
     Route: 048
     Dates: start: 20170608

REACTIONS (4)
  - Hypotension [Recovered/Resolved]
  - Dysphagia [Recovered/Resolved with Sequelae]
  - Weight decreased [Recovered/Resolved with Sequelae]
  - Lower respiratory tract infection [Unknown]

NARRATIVE: CASE EVENT DATE: 20180403
